FAERS Safety Report 20101479 (Version 3)
Quarter: 2021Q4

REPORT INFORMATION
  Report Type: Spontaneous
  Country: TW (occurrence: TW)
  Receive Date: 20211123
  Receipt Date: 20211231
  Transmission Date: 20220303
  Serious: Yes (Hospitalization, Other)
  Sender: FDA-Public Use
  Company Number: TW-NOVARTISPH-NVSC2021TW195860

PATIENT
  Age: 42 Year
  Sex: Female
  Weight: 43.4 kg

DRUGS (8)
  1. EVEROLIMUS [Suspect]
     Active Substance: EVEROLIMUS
     Indication: Pancreatic neuroendocrine tumour metastatic
     Dosage: 2 DF, QD
     Route: 048
     Dates: start: 201111, end: 201306
  2. EVEROLIMUS [Suspect]
     Active Substance: EVEROLIMUS
     Indication: Metastases to liver
  3. EVEROLIMUS [Suspect]
     Active Substance: EVEROLIMUS
     Indication: Neuroendocrine tumour
  4. EVEROLIMUS [Suspect]
     Active Substance: EVEROLIMUS
     Indication: Metastases to lymph nodes
  5. SUTENT [Suspect]
     Active Substance: SUNITINIB MALATE
     Indication: Pancreatic neuroendocrine tumour metastatic
     Dosage: 3 DF, QD
     Route: 048
     Dates: start: 20130625
  6. SUTENT [Suspect]
     Active Substance: SUNITINIB MALATE
     Indication: Metastases to liver
  7. SUTENT [Suspect]
     Active Substance: SUNITINIB MALATE
     Indication: Neuroendocrine tumour
  8. SUTENT [Suspect]
     Active Substance: SUNITINIB MALATE
     Indication: Metastases to lymph nodes

REACTIONS (7)
  - Pancreatic neuroendocrine tumour metastatic [Unknown]
  - Metastases to liver [Unknown]
  - Malignant neoplasm progression [Unknown]
  - Leukopenia [Not Recovered/Not Resolved]
  - Thrombocytopenia [Not Recovered/Not Resolved]
  - Anaemia [Not Recovered/Not Resolved]
  - Hypothyroidism [Not Recovered/Not Resolved]

NARRATIVE: CASE EVENT DATE: 20130601
